FAERS Safety Report 25273153 (Version 1)
Quarter: 2025Q2

REPORT INFORMATION
  Report Type: Spontaneous
  Country: US (occurrence: None)
  Receive Date: 20250505
  Receipt Date: 20250505
  Transmission Date: 20250716
  Serious: Yes (Hospitalization)
  Sender: FDA-CTU
  Company Number: None

PATIENT
  Age: 51 Year
  Sex: Male

DRUGS (1)
  1. TESTOSTERONE [Suspect]
     Active Substance: TESTOSTERONE
     Route: 058
     Dates: start: 20250411, end: 20250416

REACTIONS (4)
  - Pyrexia [None]
  - Dizziness [None]
  - Pain [None]
  - Erythema [None]

NARRATIVE: CASE EVENT DATE: 20250416
